FAERS Safety Report 6845615-6 (Version None)
Quarter: 2010Q3

REPORT INFORMATION
  Report Type: 
  Country: None (occurrence: None)
  Receive Date: 20100715
  Receipt Date: 20080813
  Transmission Date: 20110219
  Serious: No
  Sender: FDA-Public Use
  Company Number: US-PFIZER INC-2007070098

PATIENT
  Sex: Female
  Weight: 71.8 kg

DRUGS (6)
  1. CHANTIX [Suspect]
     Indication: SMOKING CESSATION THERAPY
     Route: 048
     Dates: start: 20070607
  2. LITHIUM [Concomitant]
     Indication: BIPOLAR DISORDER
  3. BUSPIRONE [Concomitant]
  4. VITAMINS [Concomitant]
  5. MULTI-VITAMINS [Concomitant]
  6. ALEVE (CAPLET) [Concomitant]

REACTIONS (5)
  - DEPRESSION [None]
  - DRUG DOSE OMISSION [None]
  - HEADACHE [None]
  - MIGRAINE [None]
  - WEIGHT INCREASED [None]
